FAERS Safety Report 25166016 (Version 1)
Quarter: 2025Q2

REPORT INFORMATION
  Report Type: Spontaneous
  Country: IN (occurrence: IN)
  Receive Date: 20250407
  Receipt Date: 20250407
  Transmission Date: 20250716
  Serious: Yes (Hospitalization, Other)
  Sender: SOLARIS PHARMA
  Company Number: IN-SPC-000601

PATIENT
  Age: 55 Year
  Sex: Male

DRUGS (2)
  1. METRONIDAZOLE [Suspect]
     Active Substance: METRONIDAZOLE
     Indication: Liver abscess
     Route: 065
  2. MEROPENEM [Concomitant]
     Active Substance: MEROPENEM
     Indication: Liver abscess
     Route: 065

REACTIONS (2)
  - Neurotoxicity [Recovering/Resolving]
  - Product use in unapproved indication [Unknown]
